FAERS Safety Report 24814087 (Version 1)
Quarter: 2025Q1

REPORT INFORMATION
  Report Type: Spontaneous
  Country: US (occurrence: None)
  Receive Date: 20250107
  Receipt Date: 20250107
  Transmission Date: 20250408
  Serious: Yes (Other)
  Sender: UNICHEM
  Company Number: US-Unichem Pharmaceuticals (USA) Inc-UCM202412-001788

PATIENT
  Age: 55 Year
  Sex: Female

DRUGS (6)
  1. ZONISAMIDE [Suspect]
     Active Substance: ZONISAMIDE
     Indication: Weight decreased
  2. ACETYLCYSTEINE [Concomitant]
     Active Substance: ACETYLCYSTEINE
     Indication: Hepatic failure
     Route: 042
  3. URSODIOL [Concomitant]
     Active Substance: URSODIOL
     Indication: Hepatic failure
     Route: 048
  4. METHYLPREDNISOLONE [Concomitant]
     Active Substance: METHYLPREDNISOLONE
     Indication: Hepatic failure
     Route: 042
  5. CYCLOSPORINE [Concomitant]
     Active Substance: CYCLOSPORINE
     Indication: Mediastinal mass
  6. DUPILUMAB [Concomitant]
     Active Substance: DUPILUMAB
     Indication: Mediastinal mass

REACTIONS (3)
  - Drug-induced liver injury [Not Recovered/Not Resolved]
  - Drug reaction with eosinophilia and systemic symptoms [Not Recovered/Not Resolved]
  - Product use in unapproved indication [Unknown]
